FAERS Safety Report 18116330 (Version 1)
Quarter: 2020Q3

REPORT INFORMATION
  Report Type: Spontaneous
  Country: GB (occurrence: GB)
  Receive Date: 20200806
  Receipt Date: 20200806
  Transmission Date: 20201103
  Serious: Yes (Hospitalization)
  Sender: FDA-Public Use
  Company Number: GB-TEVA-2020-GB-1808875

PATIENT
  Sex: Female

DRUGS (4)
  1. BUPRENORPHINE. [Suspect]
     Active Substance: BUPRENORPHINE
     Dosage: 10 MCG,PATCH APPLIED TO THE THIGH. THE FOLLOWING PATCH APPLIED TO THE RIGHT SHOULDER.
     Route: 062
     Dates: start: 20200624, end: 20200626
  2. BUPRENORPHINE. [Suspect]
     Active Substance: BUPRENORPHINE
     Dosage: 5 MCG,FIRST PATCH APPLIED TO UPPER TORSO. THE FOLLOWING PATCH APPLIED TO THE THIGH.
     Route: 062
     Dates: start: 20200617, end: 20200623
  3. PREGABALIN. [Concomitant]
     Active Substance: PREGABALIN
  4. ANTIHISTAMINES [Concomitant]
     Active Substance: ANTIHISTAMINES NOS
     Indication: SEASONAL ALLERGY

REACTIONS (19)
  - Dysarthria [Unknown]
  - Condition aggravated [Unknown]
  - Post-traumatic stress disorder [Unknown]
  - Application site erythema [Unknown]
  - Hypersomnia [Unknown]
  - Aphasia [Unknown]
  - Asthenia [Unknown]
  - Muscle twitching [Unknown]
  - Feeling abnormal [Unknown]
  - Pain [Unknown]
  - Tongue fungal infection [Unknown]
  - Incoherent [Unknown]
  - Scab [Unknown]
  - Hallucination [Unknown]
  - Application site pruritus [Unknown]
  - Application site pain [Unknown]
  - Amnesia [Unknown]
  - Confusional state [Unknown]
  - Feeling drunk [Unknown]

NARRATIVE: CASE EVENT DATE: 202006
